FAERS Safety Report 15533957 (Version 3)
Quarter: 2019Q3

REPORT INFORMATION
  Report Type: Spontaneous
  Country: US (occurrence: US)
  Receive Date: 20181019
  Receipt Date: 20190814
  Transmission Date: 20191004
  Serious: No
  Sender: FDA-Public Use
  Company Number: US-PFIZER INC-2018418753

PATIENT
  Age: 71 Year
  Sex: Female
  Weight: 66.6 kg

DRUGS (1)
  1. GABAPENTIN. [Suspect]
     Active Substance: GABAPENTIN
     Indication: FIBROMYALGIA
     Dosage: 600 MG, 2X/DAY
     Route: 048
     Dates: start: 1995

REACTIONS (13)
  - Visual impairment [Not Recovered/Not Resolved]
  - Abdominal discomfort [Not Recovered/Not Resolved]
  - Malaise [Unknown]
  - Product use in unapproved indication [Unknown]
  - Thinking abnormal [Unknown]
  - Depressed mood [Unknown]
  - Dizziness [Not Recovered/Not Resolved]
  - Urticaria [Unknown]
  - Nervousness [Unknown]
  - Decreased appetite [Not Recovered/Not Resolved]
  - Feeling abnormal [Unknown]
  - Off label use [Unknown]
  - Crying [Unknown]

NARRATIVE: CASE EVENT DATE: 1995
